FAERS Safety Report 8803274 (Version 1)
Quarter: 2012Q4

REPORT INFORMATION
  Report Type: 
  Country: CN (occurrence: CN)
  Receive Date: 20120924
  Receipt Date: 20120924
  Transmission Date: 20130627
  Serious: Yes (Hospitalization)
  Sender: FDA-Public Use
  Company Number: CN-BAYER-2012-098572

PATIENT
  Age: 58 Year
  Sex: Male

DRUGS (1)
  1. AVELOX [Suspect]
     Indication: THERAPEUTIC PROCEDURE
     Dosage: 0.4 g, QD
     Route: 048
     Dates: start: 20101225, end: 20110110

REACTIONS (5)
  - Haemorrhage [Recovering/Resolving]
  - Myalgia [Recovering/Resolving]
  - Dizziness [Recovering/Resolving]
  - Arrhythmia [Recovering/Resolving]
  - Hypotension [Recovering/Resolving]
